FAERS Safety Report 7200375-4 (Version None)
Quarter: 2010Q4

REPORT INFORMATION
  Report Type: 
  Country: None (occurrence: None)
  Receive Date: 20101228
  Receipt Date: 20101222
  Transmission Date: 20110411
  Serious: Yes (Death)
  Sender: FDA-Public Use
  Company Number: JP-BAYER-200914099BYL

PATIENT
  Sex: Male
  Weight: 42 kg

DRUGS (8)
  1. NEXAVAR [Suspect]
     Indication: HEPATIC NEOPLASM MALIGNANT
     Dosage: 800 MG (DAILY DOSE), , ORAL
     Route: 048
     Dates: start: 20091007, end: 20091022
  2. NEXAVAR [Suspect]
     Dosage: 400 MG (DAILY DOSE), , ORAL
     Route: 048
     Dates: end: 20100601
  3. RENIVACE [Concomitant]
     Indication: HYPERTENSION
     Dosage: DAILY DOSE 5 MG
     Route: 048
     Dates: end: 20100601
  4. TAKEPRON [Concomitant]
     Indication: GASTRIC ULCER
     Dosage: DAILY DOSE 15 MG
     Route: 048
     Dates: start: 20090623, end: 20100601
  5. MUCOSTA [Concomitant]
     Indication: GASTRIC ULCER
     Dosage: DAILY DOSE 300 MG
     Route: 048
     Dates: start: 20090312, end: 20100601
  6. ALDACTONE [Concomitant]
     Indication: OEDEMA DUE TO HEPATIC DISEASE
     Dosage: DAILY DOSE 25 MG
     Route: 048
     Dates: start: 20100108, end: 20100601
  7. LASIX [Concomitant]
     Indication: OEDEMA DUE TO HEPATIC DISEASE
     Dosage: DAILY DOSE 20 MG
     Route: 048
     Dates: start: 20100115, end: 20100601
  8. LIVACT [Concomitant]
     Indication: HYPOALBUMINAEMIA
     Dosage: DAILY DOSE 12.45 G
     Route: 048
     Dates: start: 20080626, end: 20100601

REACTIONS (5)
  - BLOOD AMYLASE INCREASED [None]
  - HYPERTENSION [None]
  - HYPOPHOSPHATAEMIA [None]
  - PALMAR-PLANTAR ERYTHRODYSAESTHESIA SYNDROME [None]
  - PNEUMONIA PNEUMOCOCCAL [None]
